FAERS Safety Report 8183030-6 (Version None)
Quarter: 2012Q1

REPORT INFORMATION
  Report Type: 
  Country: None (occurrence: None)
  Receive Date: 20120305
  Receipt Date: 20120301
  Transmission Date: 20120608
  Serious: No
  Sender: FDA-Public Use
  Company Number: US-PFIZER INC-2012056786

PATIENT
  Sex: Male
  Weight: 68 kg

DRUGS (1)
  1. NICOTROL [Suspect]
     Indication: SMOKING CESSATION THERAPY
     Dosage: UNK
     Dates: start: 20110101

REACTIONS (4)
  - DRUG INEFFECTIVE [None]
  - COUGH [None]
  - DRUG WITHDRAWAL SYNDROME [None]
  - THROAT IRRITATION [None]
